FAERS Safety Report 25367563 (Version 1)
Quarter: 2025Q2

REPORT INFORMATION
  Report Type: Spontaneous
  Country: DE (occurrence: DE)
  Receive Date: 20250528
  Receipt Date: 20250528
  Transmission Date: 20250717
  Serious: Yes (Other)
  Sender: AUROBINDO
  Company Number: DE-AUROBINDO-AUR-APL-2023-057727

PATIENT
  Age: 60 Year
  Sex: Female

DRUGS (7)
  1. HYDROCORTISONE [Suspect]
     Active Substance: HYDROCORTISONE
     Indication: Anaphylactic shock
  2. CORTISONE [Suspect]
     Active Substance: CORTISONE
     Indication: Anaphylactic shock
     Route: 065
  3. DEXAMETHASONE [Suspect]
     Active Substance: DEXAMETHASONE
     Indication: Anaphylactic shock
     Route: 065
  4. SUPRARENIN [Concomitant]
     Active Substance: EPINEPHRINE
     Indication: Anaphylactic shock
     Route: 042
  5. SUPRARENIN [Concomitant]
     Active Substance: EPINEPHRINE
     Route: 030
  6. Jonosteril [Concomitant]
     Indication: Anaphylactic shock
     Route: 065
  7. MORPHINE [Concomitant]
     Active Substance: MORPHINE
     Indication: Anaphylactic shock
     Route: 042

REACTIONS (1)
  - Drug ineffective [Unknown]
